FAERS Safety Report 8541517-8 (Version None)
Quarter: 2012Q3

REPORT INFORMATION
  Report Type: 
  Country: None (occurrence: None)
  Receive Date: 20120726
  Receipt Date: 20120724
  Transmission Date: 20120928
  Serious: Yes (Life-Threatening, Other)
  Sender: FDA-Public Use
  Company Number: JP-B.I. PHARMACEUTICALS,INC./RIDGEFIELD-2012-BP-13919NB

PATIENT
  Age: 70 Year
  Sex: Male

DRUGS (5)
  1. PHENYTOIN SODIUM CAP [Suspect]
     Indication: CONVULSION
     Dosage: 500 MG
     Route: 042
     Dates: start: 20120329, end: 20120330
  2. ASPIRIN [Concomitant]
     Route: 065
  3. DEPAKENE [Concomitant]
     Route: 065
  4. URITOS [Concomitant]
     Route: 065
  5. PRADAXA [Suspect]
     Indication: ATRIAL FIBRILLATION
     Dosage: 220 MG
     Route: 048
     Dates: end: 20120330

REACTIONS (2)
  - EPILEPSY [None]
  - CEREBRAL ARTERY EMBOLISM [None]
